FAERS Safety Report 7146556-X (Version None)
Quarter: 2010Q4

REPORT INFORMATION
  Report Type: 
  Country: None (occurrence: None)
  Receive Date: 20101208
  Receipt Date: 20101104
  Transmission Date: 20110411
  Serious: No
  Sender: FDA-Public Use
  Company Number: US-ABBOTT-10P-163-0683634-00

PATIENT
  Sex: Female
  Weight: 70.824 kg

DRUGS (3)
  1. ERY-TAB 250MG [Suspect]
     Indication: RESPIRATORY DISORDER
     Dates: start: 20101027
  2. ROBITUSSIN DM [Concomitant]
     Indication: PRODUCT USED FOR UNKNOWN INDICATION
  3. THERAFLU [Concomitant]
     Indication: PRODUCT USED FOR UNKNOWN INDICATION
     Dosage: 1.5 PACK A DAY

REACTIONS (1)
  - DRUG INEFFECTIVE [None]
